FAERS Safety Report 20572796 (Version 1)
Quarter: 2022Q1

REPORT INFORMATION
  Report Type: Spontaneous
  Country: US (occurrence: None)
  Receive Date: 20220309
  Receipt Date: 20220309
  Transmission Date: 20220424
  Serious: Yes (Hospitalization)
  Sender: FDA-Public Use
  Company Number: None

PATIENT
  Sex: Female
  Weight: 78 kg

DRUGS (6)
  1. CYCLOPHOSPHAMIDE [Suspect]
     Active Substance: CYCLOPHOSPHAMIDE
     Dates: end: 20220128
  2. CYTARABINE [Suspect]
     Active Substance: CYTARABINE
     Dates: end: 20220207
  3. MERCAPTOPURINE [Suspect]
     Active Substance: MERCAPTOPURINE
     Dates: end: 20220210
  4. METHOTREXATE [Suspect]
     Active Substance: METHOTREXATE
     Dates: end: 20220120
  5. ONCASPAR [Suspect]
     Active Substance: PEGASPARGASE
     Dates: end: 20220211
  6. VINCRISTINE SULFATE [Suspect]
     Active Substance: VINCRISTINE SULFATE
     Dates: end: 20220218

REACTIONS (27)
  - Leukoencephalopathy [None]
  - Febrile neutropenia [None]
  - Klebsiella infection [None]
  - Sepsis [None]
  - Clostridium difficile infection [None]
  - Enterocolitis [None]
  - Colitis [None]
  - Colitis [None]
  - Pleural effusion [None]
  - Hypoxia [None]
  - Tachypnoea [None]
  - Respiratory failure [None]
  - Hypotension [None]
  - Acidosis [None]
  - Colectomy [None]
  - Colitis [None]
  - Anaemia [None]
  - Thrombocytopenia [None]
  - Ischaemic hepatitis [None]
  - Urine output decreased [None]
  - Haemofiltration [None]
  - Renal failure [None]
  - Acute kidney injury [None]
  - Epistaxis [None]
  - Haemorrhage [None]
  - Coagulopathy [None]
  - International normalised ratio increased [None]

NARRATIVE: CASE EVENT DATE: 20220228
